FAERS Safety Report 12197768 (Version 1)
Quarter: 2016Q1

REPORT INFORMATION
  Report Type: Spontaneous
  Country: US (occurrence: None)
  Receive Date: 20160321
  Receipt Date: 20160321
  Transmission Date: 20160526
  Serious: No
  Sender: FDA-Public Use
  Company Number: None

PATIENT
  Age: 43 Year
  Sex: Female
  Weight: 63.5 kg

DRUGS (3)
  1. EFFEXOR [Concomitant]
     Active Substance: VENLAFAXINE HYDROCHLORIDE
  2. FLONAZE [Concomitant]
  3. TAMIFLU [Suspect]
     Active Substance: OSELTAMIVIR PHOSPHATE
     Indication: INFLUENZA
     Dosage: 1 PILL ONCE DAILY TAKEN BY MOUTH
     Route: 048
     Dates: start: 20160215, end: 20160220

REACTIONS (9)
  - Agitation [None]
  - Hypoaesthesia [None]
  - Marital problem [None]
  - Hypersomnia [None]
  - Loss of employment [None]
  - Abnormal behaviour [None]
  - Dizziness [None]
  - Hallucination [None]
  - Memory impairment [None]

NARRATIVE: CASE EVENT DATE: 20160221
